FAERS Safety Report 5003309-6 (Version None)
Quarter: 2006Q2

REPORT INFORMATION
  Report Type: 
  Country: None (occurrence: None)
  Receive Date: 20060511
  Receipt Date: 20060428
  Transmission Date: 20061013
  Serious: Yes (Death, Hospitalization)
  Sender: FDA-Public Use
  Company Number: 200610418BYL

PATIENT
  Age: 79 Year
  Sex: Male
  Weight: 40 kg

DRUGS (4)
  1. ASPIRIN [Suspect]
     Indication: MYOCARDIAL ISCHAEMIA
     Dosage: 100 MG, QD, ORAL
     Route: 048
     Dates: end: 20060208
  2. KREMEZIN [Concomitant]
  3. PANALDINE [Concomitant]
  4. PLETAL [Concomitant]

REACTIONS (2)
  - CARDIAC FAILURE ACUTE [None]
  - LIVER DISORDER [None]
